FAERS Safety Report 15338013 (Version 1)
Quarter: 2018Q3

REPORT INFORMATION
  Report Type: Spontaneous
  Country: US (occurrence: US)
  Receive Date: 20180827
  Receipt Date: 20180827
  Transmission Date: 20181010
  Serious: Yes (Disabling)
  Sender: FDA-Public Use
  Company Number: None

PATIENT
  Age: 62 Year
  Sex: Female
  Weight: 52.2 kg

DRUGS (15)
  1. AIMOVIG [Concomitant]
     Active Substance: ERENUMAB-AOOE
  2. PROZAC [Concomitant]
     Active Substance: FLUOXETINE HYDROCHLORIDE
  3. LIOTHYRINONE [Concomitant]
  4. VALCYTE [Concomitant]
     Active Substance: VALGANCICLOVIR HYDROCHLORIDE
  5. PRAMAPEXIOL [Concomitant]
  6. NADALOL [Concomitant]
  7. IMITREX [Concomitant]
     Active Substance: SUMATRIPTAN SUCCINATE
  8. AIMOVIG [Suspect]
     Active Substance: ERENUMAB-AOOE
     Indication: MIGRAINE
     Dosage: ?          QUANTITY:1 INJECTION(S);OTHER FREQUENCY:MONTHLY;?
     Route: 058
     Dates: start: 20180604, end: 20180730
  9. SUDAFED [Concomitant]
     Active Substance: PSEUDOEPHEDRINE HYDROCHLORIDE
  10. COLCHACINE [Concomitant]
  11. HYDROCODONE [Concomitant]
     Active Substance: HYDROCODONE
  12. TOPAMAX [Concomitant]
     Active Substance: TOPIRAMATE
  13. SYNTHETIC [Concomitant]
  14. CAFFEINE. [Concomitant]
     Active Substance: CAFFEINE
  15. EXCEDRIN MIGRAINE [Concomitant]
     Active Substance: ACETAMINOPHEN\ASPIRIN\CAFFEINE

REACTIONS (3)
  - Chronic fatigue syndrome [None]
  - Bedridden [None]
  - Pyrexia [None]

NARRATIVE: CASE EVENT DATE: 20180627
